FAERS Safety Report 5109791-8 (Version None)
Quarter: 2006Q3

REPORT INFORMATION
  Report Type: 
  Country: None (occurrence: None)
  Receive Date: 20060915
  Receipt Date: 20060906
  Transmission Date: 20061208
  Serious: Yes (Other)
  Sender: FDA-Public Use
  Company Number: 2006096864

PATIENT
  Age: 50 Year
  Sex: Female

DRUGS (3)
  1. NORVASC [Suspect]
     Indication: DRUG USE FOR UNKNOWN INDICATION
     Dosage: 5 MG (DAILY), ORAL
     Route: 048
  2. SIMVASTATIN [Concomitant]
  3. DRUG, UNSPECIFIED [Concomitant]

REACTIONS (4)
  - DIZZINESS [None]
  - FALL [None]
  - FRACTURE [None]
  - LOSS OF CONSCIOUSNESS [None]
